FAERS Safety Report 5297362-2 (Version None)
Quarter: 2007Q2

REPORT INFORMATION
  Report Type: 
  Country: None (occurrence: None)
  Receive Date: 20070416
  Receipt Date: 20070403
  Transmission Date: 20071010
  Serious: Yes (Hospitalization)
  Sender: FDA-Public Use
  Company Number: PHFR2007GB01222

PATIENT
  Age: 69 Year
  Sex: Female

DRUGS (1)
  1. CLOZARIL [Suspect]
     Indication: SCHIZOPHRENIA
     Dosage: 150 MANE; 250 NOCTE
     Route: 048
     Dates: start: 19990120

REACTIONS (4)
  - CARDIAC ENZYMES INCREASED [None]
  - MALAISE [None]
  - PERICARDIAL EFFUSION [None]
  - RESPIRATORY DISORDER [None]
